FAERS Safety Report 15642699 (Version 1)
Quarter: 2018Q4

REPORT INFORMATION
  Report Type: Report from Study
  Country: US (occurrence: US)
  Receive Date: 20181121
  Receipt Date: 20181121
  Transmission Date: 20190205
  Serious: Yes (Hospitalization, Other)
  Sender: FDA-Public Use
  Company Number: US-ROCHE-2216081

PATIENT

DRUGS (5)
  1. CAPECITABINE. [Suspect]
     Active Substance: CAPECITABINE
     Indication: TRANSITIONAL CELL CARCINOMA
     Dosage: A MEDIAN DOSE OF 1500 MG/M2 PER DAY (RANGE, 1050-1700 MG/M2)
     Route: 065
  2. GEMCITABINE [Suspect]
     Active Substance: GEMCITABINE\GEMCITABINE HYDROCHLORIDE
     Indication: TRANSITIONAL CELL CARCINOMA
     Route: 065
  3. 5-FLUOROURACIL [Suspect]
     Active Substance: FLUOROURACIL
     Indication: TRANSITIONAL CELL CARCINOMA
     Route: 065
  4. MITOMYCIN. [Suspect]
     Active Substance: MITOMYCIN
     Indication: TRANSITIONAL CELL CARCINOMA
     Route: 065
  5. CISPLATIN. [Suspect]
     Active Substance: CISPLATIN
     Indication: TRANSITIONAL CELL CARCINOMA
     Route: 065

REACTIONS (11)
  - Hyperbilirubinaemia [Unknown]
  - Pneumonia aspiration [Unknown]
  - Urinary tract infection [Unknown]
  - Gastrointestinal toxicity [Unknown]
  - Pain [Unknown]
  - Diarrhoea [Unknown]
  - Micturition urgency [Unknown]
  - Haematotoxicity [Unknown]
  - Bladder perforation [Unknown]
  - Oedema peripheral [Unknown]
  - Lymphopenia [Unknown]
